FAERS Safety Report 26129497 (Version 1)
Quarter: 2025Q4

REPORT INFORMATION
  Report Type: Spontaneous
  Country: AU (occurrence: AU)
  Receive Date: 20251208
  Receipt Date: 20251208
  Transmission Date: 20260118
  Serious: Yes (Other)
  Sender: AMGEN
  Company Number: AU-AMGEN-AUSSP2025238179

PATIENT
  Age: 54 Year
  Sex: Male

DRUGS (4)
  1. XGEVA [Suspect]
     Active Substance: DENOSUMAB
     Indication: Osteolysis
     Dosage: 120 MILLIGRAM, QWK, FOR THE FIRST MONTH
     Route: 058
  2. XGEVA [Suspect]
     Active Substance: DENOSUMAB
     Indication: Off label use
     Dosage: 120 MILLIGRAM, QMO
     Route: 058
  3. XGEVA [Suspect]
     Active Substance: DENOSUMAB
     Dosage: 120 MILLIGRAM, Q6WK (12-WEEKLY ADMINISTRATIONS)
     Route: 058
  4. XGEVA [Suspect]
     Active Substance: DENOSUMAB
     Dosage: 120 MILLIGRAM, Q4WK
     Route: 058

REACTIONS (4)
  - Osteolysis [Recovering/Resolving]
  - Bone lesion [Unknown]
  - Drug effective for unapproved indication [Unknown]
  - Off label use [Unknown]
